FAERS Safety Report 8550542-2 (Version None)
Quarter: 2012Q3

REPORT INFORMATION
  Report Type: 
  Country: None (occurrence: None)
  Receive Date: 20120730
  Receipt Date: 20110509
  Transmission Date: 20120928
  Serious: No
  Sender: FDA-Public Use
  Company Number: US-ALLERGAN-1106378US

PATIENT
  Age: 30 Year
  Sex: Female

DRUGS (1)
  1. LATISSE [Suspect]
     Indication: GROWTH OF EYELASHES
     Dosage: QD
     Route: 050

REACTIONS (2)
  - EYELID SKIN DRYNESS [None]
  - VISION BLURRED [None]
